FAERS Safety Report 20357439 (Version 1)
Quarter: 2022Q1

REPORT INFORMATION
  Report Type: Spontaneous
  Country: US (occurrence: None)
  Receive Date: 20220120
  Receipt Date: 20220120
  Transmission Date: 20220423
  Serious: No
  Sender: FDA-Public Use
  Company Number: None

PATIENT

DRUGS (1)
  1. ACETYLCYSTEINE [Suspect]
     Active Substance: ACETYLCYSTEINE
     Dosage: OTHER ROUTE : INHALATION OR ORAL ;?
     Route: 050

REACTIONS (3)
  - Wrong product stored [None]
  - Product label confusion [None]
  - Product packaging confusion [None]
